FAERS Safety Report 4741804-5 (Version None)
Quarter: 2005Q3

REPORT INFORMATION
  Report Type: 
  Country: None (occurrence: None)
  Receive Date: 20050803
  Receipt Date: 20050209
  Transmission Date: 20060218
  Serious: Yes (Other)
  Sender: FDA-Public Use
  Company Number: 2005028962

PATIENT
  Sex: Female

DRUGS (1)
  1. METRONIDAZOLE [Suspect]
     Indication: CLOSTRIDIUM COLITIS
     Dosage: 1500 MG (500 MG, 3 IN 1 D) ORAL
     Route: 048
     Dates: start: 20050105, end: 20050131

REACTIONS (1)
  - NEUROPATHY PERIPHERAL [None]
